FAERS Safety Report 10143431 (Version 1)
Quarter: 2014Q2

REPORT INFORMATION
  Report Type: Spontaneous
  Country: JP (occurrence: JP)
  Receive Date: 20140430
  Receipt Date: 20140430
  Transmission Date: 20141212
  Serious: Yes (Other)
  Sender: FDA-Public Use
  Company Number: JP-MALLINCKRODT-T201402010

PATIENT
  Age: 68 Year
  Sex: Male
  Weight: 38.8 kg

DRUGS (10)
  1. METHADONE [Suspect]
     Indication: CANCER PAIN
     Dosage: 5 MG, (15 MG DAILY DOSE)
     Route: 048
     Dates: start: 20131112, end: 20131118
  2. METHADONE [Suspect]
     Dosage: 10 MG, (20 MG DAILY DOSE)
     Route: 048
     Dates: start: 20131119, end: 20131125
  3. OXINORM [Concomitant]
     Dosage: 5 MG, PRN
     Route: 048
     Dates: start: 20131211
  4. WARFARIN POTASSIUM [Concomitant]
     Dosage: 1 MG, UNK
     Route: 048
     Dates: end: 20131125
  5. CODEINE [Concomitant]
     Dosage: 20 MG, UNK
     Route: 048
     Dates: end: 20131125
  6. MAGLAX [Concomitant]
     Dosage: 990 MG, UNK
     Route: 048
     Dates: end: 20131125
  7. PURSENNID [Concomitant]
     Dosage: 24 MG, UNK
     Route: 048
     Dates: end: 20131125
  8. TAKEPRON [Concomitant]
     Dosage: 24 MG, UNK
     Route: 048
     Dates: end: 20131125
  9. NABOAL [Concomitant]
     Dosage: 75 MG, UNK
     Route: 048
     Dates: end: 20131125
  10. PRIMPERAN [Concomitant]
     Dosage: 5 MG, UNK
     Route: 048
     Dates: end: 20131125

REACTIONS (2)
  - Pneumonia [Recovered/Resolved]
  - Oedema [Recovering/Resolving]
